FAERS Safety Report 5216641-8 (Version None)
Quarter: 2007Q1

REPORT INFORMATION
  Report Type: 
  Country: None (occurrence: None)
  Receive Date: 20061130
  Receipt Date: 20060627
  Transmission Date: 20070707
  Serious: Yes (Hospitalization)
  Sender: FDA-Public Use
  Company Number: US200606005718

PATIENT
  Age: 53 Year
  Sex: Male

DRUGS (9)
  1. ZYPREXA [Suspect]
     Indication: DEPRESSION
     Dosage: SEE IMAGE
     Route: 048
     Dates: start: 20060622, end: 20060622
  2. ZYPREXA [Suspect]
     Indication: DEPRESSION
     Dosage: SEE IMAGE
     Route: 048
     Dates: start: 19940101
  3. HYDROXYZINE [Concomitant]
  4. PROTONIX [Concomitant]
  5. PAXIL [Concomitant]
  6. ZOCOR [Concomitant]
  7. DIPHENOXYLATE W/ATROPINE SULFATE (ATROPINE SULFATE, DIPHENOXYLATE) [Concomitant]
  8. NEXIUM [Concomitant]
  9. LISINOPRIL [Concomitant]

REACTIONS (4)
  - CONFUSIONAL STATE [None]
  - DEPRESSION [None]
  - MEDICATION ERROR [None]
  - THINKING ABNORMAL [None]
